FAERS Safety Report 13688751 (Version 1)
Quarter: 2017Q2

REPORT INFORMATION
  Report Type: Spontaneous
  Country: US (occurrence: US)
  Receive Date: 20170623
  Receipt Date: 20170623
  Transmission Date: 20170830
  Serious: Yes (Life-Threatening, Disabling, Other)
  Sender: FDA-Public Use
  Company Number: None

PATIENT
  Age: 71 Year
  Sex: Female
  Weight: 45 kg

DRUGS (13)
  1. FOLIC ACID. [Concomitant]
     Active Substance: FOLIC ACID
  2. HUMIRA [Concomitant]
     Active Substance: ADALIMUMAB
  3. CALCIUM [Concomitant]
     Active Substance: CALCIUM
  4. CELEBREX [Concomitant]
     Active Substance: CELECOXIB
  5. METHOTREXATE. [Concomitant]
     Active Substance: METHOTREXATE
  6. CENTRUM SILVER WOMEN^S 50+ [Concomitant]
     Active Substance: MINERALS\VITAMINS
  7. LYRICA [Suspect]
     Active Substance: PREGABALIN
     Indication: HERPES ZOSTER
     Dosage: ?          QUANTITY:1 CAPSULE(S);?
     Route: 048
     Dates: start: 20170417, end: 20170419
  8. HYDROXYCHLOROQUINE SULFATE (PLAQUENIL) [Concomitant]
  9. PROLIA [Concomitant]
     Active Substance: DENOSUMAB
  10. DPA [Concomitant]
  11. OMEGA 3 EPA/DHA SUPPLEMENT [Concomitant]
  12. EPA [Concomitant]
  13. VITAMIN D3 [Concomitant]
     Active Substance: CHOLECALCIFEROL

REACTIONS (5)
  - Thinking abnormal [None]
  - Immune system disorder [None]
  - Nausea [None]
  - Abasia [None]
  - Suicidal ideation [None]

NARRATIVE: CASE EVENT DATE: 20170419
